FAERS Safety Report 19421026 (Version 1)
Quarter: 2021Q2

REPORT INFORMATION
  Report Type: Spontaneous
  Country: US (occurrence: US)
  Receive Date: 20210616
  Receipt Date: 20210616
  Transmission Date: 20210717
  Serious: No
  Sender: FDA-Public Use
  Company Number: US-TEVA-2021-US-1916936

PATIENT
  Age: 92 Year
  Sex: Female
  Weight: 49.9 kg

DRUGS (1)
  1. PROAIR RESPICLICK [Suspect]
     Active Substance: ALBUTEROL SULFATE
     Indication: CHRONIC OBSTRUCTIVE PULMONARY DISEASE
     Dosage: 2 PUFFS

REACTIONS (3)
  - Product use in unapproved indication [Unknown]
  - Lip dry [Not Recovered/Not Resolved]
  - Tongue dry [Not Recovered/Not Resolved]
